FAERS Safety Report 7082870-4 (Version None)
Quarter: 2010Q4

REPORT INFORMATION
  Report Type: 
  Country: None (occurrence: None)
  Receive Date: 20101104
  Receipt Date: 20101020
  Transmission Date: 20110411
  Serious: Yes (Other)
  Sender: FDA-Public Use
  Company Number: PHHY2010PL71148

PATIENT
  Sex: Female
  Weight: 80 kg

DRUGS (7)
  1. EXELON [Suspect]
     Indication: DEMENTIA ALZHEIMER'S TYPE
     Dosage: 4.6 MG, QD
     Route: 062
  2. EXELON [Suspect]
     Dosage: 9.5 MG, QD
     Route: 062
     Dates: start: 20100715, end: 20100915
  3. ACCUPRO [Concomitant]
     Dosage: UNK
  4. RISSET [Concomitant]
     Dosage: UNK
     Dates: start: 20090301
  5. GASEC [Concomitant]
     Dosage: UNK
     Route: 048
  6. MIANSERIN [Concomitant]
     Dosage: UNK
  7. HYDROCHLOROTHIAZIDE [Concomitant]
     Dosage: UNK

REACTIONS (4)
  - APPLICATION SITE HYPERSENSITIVITY [None]
  - APPLICATION SITE PAIN [None]
  - APPLICATION SITE PRURITUS [None]
  - APPLICATION SITE RASH [None]
